FAERS Safety Report 5509537-5 (Version None)
Quarter: 2007Q4

REPORT INFORMATION
  Report Type: 
  Country: None (occurrence: None)
  Receive Date: 20071029
  Receipt Date: 20070820
  Transmission Date: 20080405
  Serious: No
  Sender: FDA-Public Use
  Company Number: 012952

PATIENT
  Age: 47 Year
  Sex: Male

DRUGS (8)
  1. PRIALT [Suspect]
     Indication: PAIN
     Dosage: SEE IMAGE
     Route: 037
     Dates: start: 20070201, end: 20070101
  2. PRIALT [Suspect]
     Indication: POST LAMINECTOMY SYNDROME
     Dosage: SEE IMAGE
     Route: 037
     Dates: start: 20070201, end: 20070101
  3. PRIALT [Suspect]
     Indication: PAIN
     Dosage: SEE IMAGE
     Route: 037
     Dates: start: 20070101
  4. PRIALT [Suspect]
     Indication: POST LAMINECTOMY SYNDROME
     Dosage: SEE IMAGE
     Route: 037
     Dates: start: 20070101
  5. KLONOPIN [Concomitant]
  6. CELEXA [Concomitant]
  7. VICODIN [Concomitant]
  8. OXYCONTIN [Concomitant]

REACTIONS (6)
  - BURNING SENSATION [None]
  - CHROMATURIA [None]
  - IMPLANT SITE PAIN [None]
  - PAIN [None]
  - PAIN IN EXTREMITY [None]
  - POLYDIPSIA [None]
